FAERS Safety Report 11076816 (Version 2)
Quarter: 2015Q2

REPORT INFORMATION
  Report Type: Spontaneous
  Country: TR (occurrence: TR)
  Receive Date: 20150429
  Receipt Date: 20150501
  Transmission Date: 20150821
  Serious: Yes (Death, Hospitalization)
  Sender: FDA-Public Use
  Company Number: PHHY2015TR048082

PATIENT
  Age: 6 Year
  Sex: Female

DRUGS (6)
  1. CELLCEPT [Suspect]
     Active Substance: MYCOPHENOLATE MOFETIL\MYCOPHENOLATE MOFETIL HYDROCHLORIDE
     Indication: CHEDIAK-HIGASHI SYNDROME
     Dosage: 500 MG, BID
     Route: 065
  2. CELLCEPT [Suspect]
     Active Substance: MYCOPHENOLATE MOFETIL\MYCOPHENOLATE MOFETIL HYDROCHLORIDE
     Indication: HISTIOCYTOSIS HAEMATOPHAGIC
  3. ETOPOSIDE. [Suspect]
     Active Substance: ETOPOSIDE
     Indication: CHEDIAK-HIGASHI SYNDROME
     Dosage: 120 MG, BIW
     Route: 065
  4. ETOPOSIDE. [Suspect]
     Active Substance: ETOPOSIDE
     Indication: HISTIOCYTOSIS HAEMATOPHAGIC
  5. CICLOSPORIN [Suspect]
     Active Substance: CYCLOSPORINE
     Indication: HISTIOCYTOSIS HAEMATOPHAGIC
  6. CICLOSPORIN [Suspect]
     Active Substance: CYCLOSPORINE
     Indication: CHEDIAK-HIGASHI SYNDROME
     Dosage: 6 MG/KG, QD
     Route: 065

REACTIONS (7)
  - Generalised tonic-clonic seizure [Unknown]
  - Irritability [Unknown]
  - Product use issue [Unknown]
  - Vasogenic cerebral oedema [Unknown]
  - Gaze palsy [Unknown]
  - Cardiac arrest [Fatal]
  - Posterior reversible encephalopathy syndrome [Unknown]
